FAERS Safety Report 12297906 (Version 1)
Quarter: 2016Q2

REPORT INFORMATION
  Report Type: Spontaneous
  Country: US (occurrence: US)
  Receive Date: 20160422
  Receipt Date: 20160422
  Transmission Date: 20160815
  Serious: No
  Sender: FDA-Public Use
  Company Number: US-PFIZER INC-2016199391

PATIENT
  Age: 75 Year
  Sex: Male
  Weight: 61 kg

DRUGS (1)
  1. AZITHROMYCIN ANHYDROUS. [Suspect]
     Active Substance: AZITHROMYCIN ANHYDROUS
     Indication: PHARYNGITIS
     Dosage: 250 MG, 5 DAY PACK 2 FIRST DAY THEN IT IS 1, 1, 1

REACTIONS (4)
  - Drug ineffective [Unknown]
  - Head injury [Unknown]
  - Hand fracture [Unknown]
  - Fall [Unknown]
